FAERS Safety Report 20147936 (Version 1)
Quarter: 2021Q4

REPORT INFORMATION
  Report Type: Spontaneous
  Country: US (occurrence: US)
  Receive Date: 20211204
  Receipt Date: 20211204
  Transmission Date: 20220303
  Serious: No
  Sender: FDA-Public Use
  Company Number: US-drreddys-SPO/USA/21/0144367

PATIENT
  Age: 32 Year
  Sex: Male

DRUGS (1)
  1. ZENATANE [Suspect]
     Active Substance: ISOTRETINOIN
     Indication: Product used for unknown indication
     Dosage: RMA ISSUE DATE:29 JUNE 2021 12:00:00 AM,23 JULY 2021 12:00:00 AM,27 AUGUST 2021 12:00:00 AM,24 SEPTE

REACTIONS (1)
  - Alopecia [Unknown]
